FAERS Safety Report 10143381 (Version 2)
Quarter: 2014Q2

REPORT INFORMATION
  Report Type: Spontaneous
  Country: US (occurrence: US)
  Receive Date: 20140430
  Receipt Date: 20140506
  Transmission Date: 20141212
  Serious: Yes (Hospitalization, Other)
  Sender: FDA-Public Use
  Company Number: US-BAXTER-2014BAX020637

PATIENT
  Sex: Male

DRUGS (2)
  1. DIANEAL LOW CALCIUM (ULTRABAG) [Suspect]
     Indication: PERITONEAL DIALYSIS
     Route: 033
  2. DIANEAL LOW CALCIUM (ULTRABAG) [Suspect]
     Indication: PERITONEAL DIALYSIS
     Route: 033

REACTIONS (8)
  - Nervous system disorder [Not Recovered/Not Resolved]
  - Dehydration [Recovered/Resolved]
  - Musculoskeletal pain [Recovering/Resolving]
  - Abdominal pain [Recovering/Resolving]
  - Neuralgia [Unknown]
  - Wrong drug administered [Unknown]
  - Muscle spasms [Recovered/Resolved]
  - Hypotension [Recovered/Resolved]
